FAERS Safety Report 20228591 (Version 2)
Quarter: 2022Q1

REPORT INFORMATION
  Report Type: Report from Study
  Country: US (occurrence: US)
  Receive Date: 20211225
  Receipt Date: 20220127
  Transmission Date: 20220423
  Serious: No
  Sender: FDA-Public Use
  Company Number: US-SANOFI-00897783

PATIENT
  Age: 15 Year
  Sex: Female

DRUGS (6)
  1. DUPIXENT [Suspect]
     Active Substance: DUPILUMAB
     Indication: Dermatitis atopic
     Dosage: 1 DF, QOW
     Dates: start: 20211203
  2. DUPIXENT [Suspect]
     Active Substance: DUPILUMAB
     Indication: Asthma
     Dosage: 400 MG, 1X
     Route: 058
     Dates: start: 20211203, end: 20211203
  3. DUPIXENT [Suspect]
     Active Substance: DUPILUMAB
     Dosage: 600 MG, 1X
     Route: 058
     Dates: start: 20220103, end: 20220103
  4. DUPIXENT [Suspect]
     Active Substance: DUPILUMAB
     Dosage: 300 MG
     Route: 058
     Dates: start: 202201
  5. CORTAID [HYDROCORTISONE] [Concomitant]
  6. AQUAPHOR [WHITE SOFT PARAFFIN] [Concomitant]

REACTIONS (10)
  - Ocular hyperaemia [Recovering/Resolving]
  - Skin exfoliation [Recovering/Resolving]
  - Stress [Not Recovered/Not Resolved]
  - Skin lesion [Not Recovered/Not Resolved]
  - Blister [Not Recovered/Not Resolved]
  - Eye inflammation [Recovering/Resolving]
  - Rash [Recovering/Resolving]
  - Product preparation error [Unknown]
  - Incorrect dose administered [Unknown]
  - Incorrect dose administered [Recovering/Resolving]

NARRATIVE: CASE EVENT DATE: 20211203
